FAERS Safety Report 10069157 (Version 1)
Quarter: 2014Q2

REPORT INFORMATION
  Report Type: Spontaneous
  Country: BR (occurrence: BR)
  Receive Date: 20140409
  Receipt Date: 20140409
  Transmission Date: 20141212
  Serious: Yes (Hospitalization)
  Sender: FDA-Public Use
  Company Number: BR-009507513-1404BRA004529

PATIENT
  Age: 39 Year
  Sex: Male

DRUGS (1)
  1. FOSAMAX D [Suspect]
     Indication: OSTEOPOROSIS
     Dosage: 70MG/5600IU, QW
     Route: 048
     Dates: start: 20140324, end: 20140324

REACTIONS (5)
  - Syncope [Recovered/Resolved]
  - Hypotension [Recovered/Resolved]
  - Abdominal pain upper [Recovered/Resolved]
  - Nausea [Recovered/Resolved]
  - Diarrhoea [Recovered/Resolved]
